FAERS Safety Report 9703749 (Version 2)
Quarter: 2013Q4

REPORT INFORMATION
  Report Type: Report from Study
  Country: FR (occurrence: FR)
  Receive Date: 20131122
  Receipt Date: 20131122
  Transmission Date: 20140711
  Serious: Yes (Hospitalization, Other)
  Sender: FDA-Public Use
  Company Number: PHHO2012FR009997

PATIENT
  Age: 6 Year
  Sex: Female
  Weight: 24.49 kg

DRUGS (23)
  1. AFINITOR [Suspect]
     Indication: ASTROCYTOMA, LOW GRADE
     Dosage: 5 MG, UNK
     Route: 048
     Dates: start: 20111220, end: 20120622
  2. AFINITOR [Suspect]
     Dosage: 5 MG, UNK
     Route: 048
     Dates: start: 20120720, end: 20120827
  3. VALPROIC ACID [Concomitant]
     Indication: INFANTILE SPASMS
     Dosage: 800 MG DAILY
     Dates: start: 20070703
  4. ZECLAR [Concomitant]
     Indication: BRONCHITIS
     Dosage: UNK
     Dates: start: 20120413, end: 20120420
  5. DAFALGAN [Concomitant]
     Indication: PYREXIA
     Dosage: UNK
     Dates: start: 20120324, end: 20120507
  6. ATARAX//HYDROXYZINE [Concomitant]
     Indication: SEDATION
     Dosage: UNK
     Dates: start: 20120314
  7. ATARAX//HYDROXYZINE [Concomitant]
     Dosage: UNK
     Dates: start: 20120413
  8. NERVIFENE [Concomitant]
     Indication: SEDATION
     Dosage: UNK
     Dates: start: 20111206
  9. NERVIFENE [Concomitant]
     Dosage: UNK
     Dates: start: 20120314
  10. NERVIFENE [Concomitant]
     Dosage: UNK
     Dates: start: 20120703
  11. EMLA [Concomitant]
     Dosage: UNK
     Dates: start: 20111206
  12. EMLA [Concomitant]
     Dosage: UNK
     Dates: start: 20111220
  13. EMLA [Concomitant]
     Dosage: UNK
     Dates: start: 20120104
  14. EMLA [Concomitant]
     Dosage: UNK
     Dates: start: 20120118
  15. EMLA [Concomitant]
     Dosage: UNK
     Dates: start: 20120215
  16. EMLA [Concomitant]
     Dosage: UNK
     Dates: start: 20120314
  17. EMLA [Concomitant]
     Dosage: UNK
     Dates: start: 20120413
  18. MAG 2 [Concomitant]
     Dosage: UNK
     Dates: start: 20120314
  19. ADVIL [Concomitant]
     Indication: PYREXIA
     Dosage: UNK
     Dates: start: 20120113, end: 20120114
  20. MIDRIATICUM [Concomitant]
     Dosage: UNK
     Dates: start: 20111206
  21. LOCOID [Concomitant]
     Indication: ECZEMA
     Dosage: UNK
     Dates: start: 20120118, end: 20120119
  22. MICROPAKINE [Concomitant]
     Indication: EPILEPSY
     Dosage: UNK
     Dates: start: 20070703
  23. LAMICTAL [Concomitant]
     Indication: EPILEPSY
     Dosage: UNK
     Dates: start: 201106

REACTIONS (3)
  - Lung disorder [Recovering/Resolving]
  - Neutropenia [Recovering/Resolving]
  - Pyrexia [Unknown]
